FAERS Safety Report 11886447 (Version 1)
Quarter: 2016Q1

REPORT INFORMATION
  Report Type: Spontaneous
  Country: CH (occurrence: CH)
  Receive Date: 20160104
  Receipt Date: 20160104
  Transmission Date: 20160526
  Serious: Yes (Other)
  Sender: FDA-Public Use
  Company Number: CH-BAYER-2015-495734

PATIENT
  Age: 26 Year
  Sex: Male
  Weight: 78 kg

DRUGS (3)
  1. CIPROFLOXACIN. [Suspect]
     Active Substance: CIPROFLOXACIN
     Indication: PROSTATITIS
     Dosage: 500 MG, BID
     Route: 048
     Dates: start: 20150502, end: 20150509
  2. IRFEN [Concomitant]
     Active Substance: IBUPROFEN
     Indication: PAIN MANAGEMENT
     Dosage: 1 DF, UNK
     Route: 048
     Dates: start: 2014, end: 2015
  3. TEMESTA [Concomitant]
     Active Substance: LORAZEPAM
     Indication: ANXIETY
     Dosage: 1 DF, UNK
     Route: 048
     Dates: start: 201505

REACTIONS (12)
  - Ocular discomfort [Not Recovered/Not Resolved]
  - Fatigue [Unknown]
  - Abnormal sensation in eye [Not Recovered/Not Resolved]
  - Feeling drunk [Not Recovered/Not Resolved]
  - Tremor [Recovered/Resolved]
  - Dysaesthesia [Not Recovered/Not Resolved]
  - Headache [Not Recovered/Not Resolved]
  - Anxiety disorder [Not Recovered/Not Resolved]
  - Vision blurred [Recovered/Resolved]
  - Nausea [Not Recovered/Not Resolved]
  - Photophobia [Unknown]
  - Paraesthesia [Not Recovered/Not Resolved]

NARRATIVE: CASE EVENT DATE: 2015
